FAERS Safety Report 6237830-X (Version None)
Quarter: 2009Q2

REPORT INFORMATION
  Report Type: 
  Country: None (occurrence: None)
  Receive Date: 20090617
  Receipt Date: 20090610
  Transmission Date: 20091009
  Serious: Yes (Hospitalization, Other)
  Sender: FDA-Public Use
  Company Number: WAES 0906USA01964

PATIENT
  Age: 64 Year
  Sex: Female
  Weight: 63.05 kg

DRUGS (7)
  1. DECADRON [Suspect]
     Indication: LUNG NEOPLASM MALIGNANT
     Dosage: 16 MG/BID/PO
     Route: 048
     Dates: start: 20080916, end: 20081103
  2. GEMZAR [Suspect]
     Indication: LUNG NEOPLASM MALIGNANT
     Dosage: IV
     Route: 042
     Dates: start: 20080916, end: 20081103
  3. CARBOPLATIN [Suspect]
     Indication: LUNG NEOPLASM MALIGNANT
     Dosage: IV
     Route: 042
     Dates: start: 20080916, end: 20081103
  4. CIPRO [Concomitant]
  5. COMPAZINE [Concomitant]
  6. MEGACE [Concomitant]
  7. OXYCODONE HCL [Concomitant]

REACTIONS (5)
  - ANAEMIA [None]
  - DISEASE PROGRESSION [None]
  - LUNG NEOPLASM MALIGNANT [None]
  - THROMBOCYTOPENIA [None]
  - TRANSFUSION REACTION [None]
